FAERS Safety Report 15279562 (Version 1)
Quarter: 2018Q3

REPORT INFORMATION
  Report Type: Spontaneous
  Country: AU (occurrence: AU)
  Receive Date: 20180730
  Receipt Date: 20180730
  Transmission Date: 20181010
  Serious: Yes (Disabling)
  Sender: FDA-Public Use
  Company Number: None

PATIENT
  Age: 42 Year
  Sex: Female
  Weight: 80 kg

DRUGS (2)
  1. CIPROFLOXACIN. [Suspect]
     Active Substance: CIPROFLOXACIN
     Indication: MYCOBACTERIAL INFECTION
     Dosage: ?          QUANTITY:1 DF DOSAGE FORM;?
     Route: 048
     Dates: start: 20160405, end: 20160921
  2. BACTERIM [Concomitant]

REACTIONS (6)
  - Feeling abnormal [None]
  - Memory impairment [None]
  - Muscle atrophy [None]
  - Tendonitis [None]
  - Small fibre neuropathy [None]
  - Muscular weakness [None]

NARRATIVE: CASE EVENT DATE: 20160921
